FAERS Safety Report 12239903 (Version 1)
Quarter: 2016Q2

REPORT INFORMATION
  Report Type: Spontaneous
  Country: CA (occurrence: CA)
  Receive Date: 20160405
  Receipt Date: 20160405
  Transmission Date: 20160815
  Serious: Yes (Other)
  Sender: FDA-Public Use
  Company Number: CA-ELI_LILLY_AND_COMPANY-CA201603009823

PATIENT
  Age: 82 Year
  Sex: Male

DRUGS (1)
  1. HUMALOG MIX75/25 [Suspect]
     Active Substance: INSULIN LISPRO
     Indication: PRODUCT USED FOR UNKNOWN INDICATION
     Dosage: 44 U, UNKNOWN
     Route: 065
     Dates: start: 2011

REACTIONS (4)
  - Bone cancer metastatic [Unknown]
  - Injection site injury [Unknown]
  - Prostate cancer recurrent [Unknown]
  - Tremor [Unknown]

NARRATIVE: CASE EVENT DATE: 2012
